FAERS Safety Report 19410068 (Version 3)
Quarter: 2021Q2

REPORT INFORMATION
  Report Type: Spontaneous
  Country: US (occurrence: US)
  Receive Date: 20210614
  Receipt Date: 20210614
  Transmission Date: 20210717
  Serious: Yes (Other)
  Sender: FDA-Public Use
  Company Number: US-CELGENEUS-USA-20210601509

PATIENT
  Sex: Male

DRUGS (1)
  1. THALIDOMIDE [Suspect]
     Active Substance: THALIDOMIDE
     Indication: MANTLE CELL LYMPHOMA
     Dosage: MAINTENANCE THERAPY
     Route: 048

REACTIONS (3)
  - Prostate cancer [Unknown]
  - Mantle cell lymphoma recurrent [Unknown]
  - Neuropathy peripheral [Unknown]
